FAERS Safety Report 22794264 (Version 2)
Quarter: 2023Q4

REPORT INFORMATION
  Report Type: Report from Study
  Country: GB (occurrence: GB)
  Receive Date: 20230807
  Receipt Date: 20231031
  Transmission Date: 20240109
  Serious: Yes (Other)
  Sender: FDA-Public Use
  Company Number: GB-002147023-NVSC2023GB168600

PATIENT

DRUGS (1)
  1. LUTATHERA [Suspect]
     Active Substance: LUTETIUM OXODOTREOTIDE LU-177
     Indication: Paraganglion neoplasm
     Dosage: 1 CYCLICAL (CYCLE 1) (NEXT DOSE SCHEDULED 08 AUG 2023)
     Route: 065
     Dates: start: 20230608

REACTIONS (7)
  - Paraganglion neoplasm [Unknown]
  - Malignant neoplasm progression [Unknown]
  - Pain [Unknown]
  - Hypertension [Unknown]
  - Laboratory test abnormal [Unknown]
  - General physical health deterioration [Unknown]
  - Off label use [Unknown]
